FAERS Safety Report 9338598 (Version 1)
Quarter: 2013Q2

REPORT INFORMATION
  Report Type: Report from Study
  Country: AR (occurrence: AR)
  Receive Date: 20130610
  Receipt Date: 20130610
  Transmission Date: 20140414
  Serious: Yes (Other)
  Sender: FDA-Public Use
  Company Number: PHHY2013AR057892

PATIENT
  Age: 60 Year
  Sex: Female

DRUGS (2)
  1. TOBI [Suspect]
     Indication: PSEUDOMONAS INFECTION
     Dosage: TWO NEBULIZATIONS DAILY
     Dates: start: 2010, end: 2011
  2. TOBI [Suspect]
     Dosage: UNK UKN, BID
     Dates: start: 20130604

REACTIONS (2)
  - Bronchitis [Recovering/Resolving]
  - Pseudomonas infection [Not Recovered/Not Resolved]
